FAERS Safety Report 7112429-1 (Version None)
Quarter: 2010Q4

REPORT INFORMATION
  Report Type: 
  Country: None (occurrence: None)
  Receive Date: 20101119
  Receipt Date: 20101115
  Transmission Date: 20110411
  Serious: Yes (Life-Threatening)
  Sender: FDA-Public Use
  Company Number: DE-ASTRAZENECA-2008PK02429

PATIENT
  Age: 5 Week
  Sex: Male
  Weight: 4 kg

DRUGS (6)
  1. PROPOFOL [Suspect]
     Indication: GENERAL ANAESTHESIA
     Route: 042
  2. PROPOFOL [Suspect]
     Dosage: HIGH DOSE FOR INDUCTION OF ANESTHESIA
     Route: 042
  3. NAROPIN [Suspect]
     Indication: SPINAL ANAESTHESIA
     Dosage: 40 MG INSTEAD OF CORRECT 8 MG
     Route: 008
  4. FENTANYL [Concomitant]
     Indication: GENERAL ANAESTHESIA
     Route: 042
  5. SEVOFLURANE [Concomitant]
     Indication: MAINTENANCE OF ANAESTHESIA
     Dosage: 1 MAC IN 50 % OXYGEN
  6. OXYGEN [Concomitant]
     Indication: MAINTENANCE OF ANAESTHESIA

REACTIONS (7)
  - ACCIDENTAL OVERDOSE [None]
  - BRADYCARDIA [None]
  - CARDIAC DISORDER [None]
  - DRUG LABEL CONFUSION [None]
  - ELECTROCARDIOGRAM ABNORMAL [None]
  - MYDRIASIS [None]
  - PUPILLARY REFLEX IMPAIRED [None]
